FAERS Safety Report 13653476 (Version 1)
Quarter: 2017Q2

REPORT INFORMATION
  Report Type: Spontaneous
  Country: US (occurrence: US)
  Receive Date: 20170614
  Receipt Date: 20170614
  Transmission Date: 20170830
  Serious: No
  Sender: FDA-Public Use
  Company Number: US-ROCHE-1301902

PATIENT
  Sex: Male

DRUGS (6)
  1. CARVEDILOL. [Concomitant]
     Active Substance: CARVEDILOL
     Route: 065
  2. XELODA [Suspect]
     Active Substance: CAPECITABINE
     Indication: COLORECTAL CANCER
     Dosage: DAYS 1 THROUGH 14 OF EVERY 21 DAY CYCLE
     Route: 065
     Dates: start: 20130909
  3. AMLODIPINE [Concomitant]
     Active Substance: AMLODIPINE BESYLATE
  4. WARFARIN [Concomitant]
     Active Substance: WARFARIN
  5. FERROUS SULFATE. [Concomitant]
     Active Substance: FERROUS SULFATE
  6. LISINOPRIL. [Concomitant]
     Active Substance: LISINOPRIL

REACTIONS (1)
  - Diarrhoea [Unknown]
